FAERS Safety Report 25312411 (Version 1)
Quarter: 2025Q2

REPORT INFORMATION
  Report Type: Spontaneous
  Country: FR (occurrence: FR)
  Receive Date: 20250514
  Receipt Date: 20250514
  Transmission Date: 20250717
  Serious: Yes (Hospitalization)
  Sender: SUNOVION
  Company Number: None

PATIENT

DRUGS (4)
  1. RELUGOLIX [Suspect]
     Active Substance: RELUGOLIX
     Indication: Prostate cancer
     Dosage: STRENGTH: 120 MG
     Route: 048
     Dates: start: 20240809, end: 202503
  2. PANTOPRAZOLE [Concomitant]
     Active Substance: PANTOPRAZOLE
     Route: 065
  3. ATORVASTATIN [Concomitant]
     Active Substance: ATORVASTATIN
     Route: 065
  4. KARDEGIC [Concomitant]
     Active Substance: ASPIRIN DL-LYSINE
     Route: 065

REACTIONS (1)
  - Atrial fibrillation [Recovered/Resolved]

NARRATIVE: CASE EVENT DATE: 20250315
